FAERS Safety Report 6128784-5 (Version None)
Quarter: 2009Q1

REPORT INFORMATION
  Report Type: 
  Country: None (occurrence: None)
  Receive Date: 20090320
  Receipt Date: 20090120
  Transmission Date: 20090719
  Serious: Yes (Disabling)
  Sender: FDA-Public Use
  Company Number: 2008EU002971

PATIENT
  Age: 49 Year
  Sex: Male

DRUGS (6)
  1. PROGRAF [Suspect]
     Indication: RENAL TRANSPLANT
     Dosage: 8 MG,/D, ORAL
     Route: 048
     Dates: start: 20020201, end: 20030101
  2. CORTICOSTEROIDS [Concomitant]
  3. PROGRAF [Suspect]
     Indication: RENAL TRANSPLANT
     Dosage: 8 MG, UNKNOWN/D ORAL
     Route: 048
     Dates: start: 20020201, end: 20030101
  4. CORTICOSTEROIDS [Concomitant]
  5. PLAVIX [Concomitant]
  6. CELLCEPT [Concomitant]

REACTIONS (14)
  - BLOOD ALKALINE PHOSPHATASE INCREASED [None]
  - CEREBELLAR INFARCTION [None]
  - CEREBRAL INFARCTION [None]
  - COORDINATION ABNORMAL [None]
  - HEMIANOPIA [None]
  - HYPERPARATHYROIDISM SECONDARY [None]
  - HYPOAESTHESIA [None]
  - HYPOPHOSPHATAEMIA [None]
  - OSTEOCALCIN INCREASED [None]
  - OSTEOMALACIA [None]
  - OSTEOPENIA [None]
  - PAIN [None]
  - RENAL TUBULAR DISORDER [None]
  - SPEECH DISORDER [None]
